FAERS Safety Report 13364014 (Version 4)
Quarter: 2017Q2

REPORT INFORMATION
  Report Type: Spontaneous
  Country: US (occurrence: US)
  Receive Date: 20170323
  Receipt Date: 20170412
  Transmission Date: 20170830
  Serious: Yes (Other)
  Sender: FDA-Public Use
  Company Number: US-PFIZER INC-2017125393

PATIENT
  Age: 69 Year
  Sex: Male
  Weight: 104.33 kg

DRUGS (6)
  1. LISINOPRIL. [Concomitant]
     Active Substance: LISINOPRIL
  2. ATORVASTATIN [Concomitant]
     Active Substance: ATORVASTATIN
  3. AMLODIPINE [Concomitant]
     Active Substance: AMLODIPINE BESYLATE
  4. GABAPENTIN. [Suspect]
     Active Substance: GABAPENTIN
     Indication: BACK PAIN
     Dosage: IN 2014 OR 2015 AT 100 MG, UNK (3 IN THE MORNING, 3 AT NOON AND 3 OR 4 AT BEDTIME)
     Route: 048
  5. GABAPENTIN. [Suspect]
     Active Substance: GABAPENTIN
     Dosage: 200 MG, 2X/DAY
     Route: 048
     Dates: start: 20170228
  6. GABAPENTIN. [Suspect]
     Active Substance: GABAPENTIN
     Dosage: 100 MG, 4 OR 5 DAY (2 IN MORNING, 2 OR 3 LATER ON)
     Route: 048
     Dates: start: 2017

REACTIONS (5)
  - Dry throat [Unknown]
  - Nightmare [Unknown]
  - Abasia [Unknown]
  - Dysstasia [Unknown]
  - Drug ineffective for unapproved indication [Unknown]
